APPROVED DRUG PRODUCT: QUIBRON-T/SR
Active Ingredient: THEOPHYLLINE
Strength: 300MG
Dosage Form/Route: TABLET, EXTENDED RELEASE;ORAL
Application: A087563 | Product #001
Applicant: MONARCH PHARMACEUTICALS INC
Approved: Jun 21, 1983 | RLD: No | RS: No | Type: DISCN